FAERS Safety Report 9778055 (Version 1)
Quarter: 2013Q4

REPORT INFORMATION
  Report Type: Spontaneous
  Country: US (occurrence: US)
  Receive Date: 20131223
  Receipt Date: 20131223
  Transmission Date: 20140711
  Serious: No
  Sender: FDA-Public Use
  Company Number: US-009507513-1310USA014170

PATIENT
  Sex: Female

DRUGS (1)
  1. AZASITE [Suspect]
     Dosage: 1 GTT EACH AFFECTED EYE BID
     Route: 047
     Dates: start: 2013

REACTIONS (2)
  - Eye disorder [Unknown]
  - Off label use [Unknown]
